FAERS Safety Report 24755133 (Version 1)
Quarter: 2024Q4

REPORT INFORMATION
  Report Type: Spontaneous
  Country: US (occurrence: None)
  Receive Date: 20241218
  Receipt Date: 20241218
  Transmission Date: 20250114
  Serious: No
  Sender: Public
  Company Number: None

PATIENT
  Age: 78 Year
  Sex: Male

DRUGS (1)
  1. DABIGATRAN ETEXILATE [Suspect]
     Active Substance: DABIGATRAN ETEXILATE
     Dosage: FREQUENCY : TWICE A DAY;?
     Route: 048
     Dates: start: 20221203

REACTIONS (2)
  - Blood urine present [None]
  - Penile swelling [None]

NARRATIVE: CASE EVENT DATE: 20221203
